FAERS Safety Report 11376682 (Version 1)
Quarter: 2015Q3

REPORT INFORMATION
  Report Type: Spontaneous
  Country: CH (occurrence: CH)
  Receive Date: 20150813
  Receipt Date: 20150813
  Transmission Date: 20151125
  Serious: Yes (Hospitalization, Other)
  Sender: FDA-Public Use
  Company Number: CH-ASTRAZENECA-2015SE77320

PATIENT
  Age: 1 Day
  Sex: Female
  Weight: 3.3 kg

DRUGS (14)
  1. FLUOXETINE [Suspect]
     Active Substance: FLUOXETINE\FLUOXETINE HYDROCHLORIDE
     Route: 063
     Dates: start: 20150202
  2. LYRICA [Suspect]
     Active Substance: PREGABALIN
     Route: 064
     Dates: end: 20150202
  3. METHADONE [Suspect]
     Active Substance: METHADONE HYDROCHLORIDE
     Route: 064
     Dates: end: 20150202
  4. FLUOXETINE [Suspect]
     Active Substance: FLUOXETINE\FLUOXETINE HYDROCHLORIDE
     Route: 064
     Dates: end: 20150202
  5. FLUOXETINE [Suspect]
     Active Substance: FLUOXETINE\FLUOXETINE HYDROCHLORIDE
     Route: 063
     Dates: start: 20150202
  6. SEROQUEL [Suspect]
     Active Substance: QUETIAPINE FUMARATE
     Route: 063
     Dates: start: 20150202
  7. METHADONE [Suspect]
     Active Substance: METHADONE HYDROCHLORIDE
     Route: 063
     Dates: start: 20150202
  8. METHADONE [Suspect]
     Active Substance: METHADONE HYDROCHLORIDE
     Route: 063
     Dates: start: 20150202
  9. METHADONE [Suspect]
     Active Substance: METHADONE HYDROCHLORIDE
     Route: 064
     Dates: end: 20150202
  10. SEROQUEL [Suspect]
     Active Substance: QUETIAPINE FUMARATE
     Route: 064
     Dates: end: 20150202
  11. LYRICA [Suspect]
     Active Substance: PREGABALIN
     Route: 063
     Dates: start: 20150202
  12. FLUOXETINE [Suspect]
     Active Substance: FLUOXETINE\FLUOXETINE HYDROCHLORIDE
     Route: 064
     Dates: end: 20150202
  13. MYDOCALM [Suspect]
     Active Substance: TOLPERISONE
     Route: 064
     Dates: end: 20150202
  14. MYDOCALM [Suspect]
     Active Substance: TOLPERISONE
     Route: 063
     Dates: start: 20150202

REACTIONS (2)
  - Exposure during breast feeding [Unknown]
  - Drug withdrawal syndrome neonatal [Recovered/Resolved]

NARRATIVE: CASE EVENT DATE: 20150203
